FAERS Safety Report 7435158-3 (Version None)
Quarter: 2011Q2

REPORT INFORMATION
  Report Type: 
  Country: None (occurrence: None)
  Receive Date: 20110425
  Receipt Date: 20110411
  Transmission Date: 20111010
  Serious: Yes (Hospitalization)
  Sender: FDA-Public Use
  Company Number: PHHY2011US29949

PATIENT
  Sex: Male

DRUGS (13)
  1. SOTALOL [Concomitant]
     Dosage: 120 MG, ONCE IN THE MOR AND ONCE IN THE EVE
  2. TEKTURNA [Suspect]
     Dosage: 150 MG, UNK
  3. TEKTURNA [Suspect]
     Dosage: 300 MG, UNK
  4. VITAMIN D [Concomitant]
  5. TEKTURNA HCT [Suspect]
     Dosage: 300 MG ALIS AND 12.5 MG HCT
  6. LEVOTHYROXINE SODIUM [Concomitant]
     Dosage: 88 MG, QD
  7. FOLIC ACID [Concomitant]
     Dosage: 1 MG, UNK
  8. CEPHALEXIN [Concomitant]
     Dosage: 500 MG, EVERY 6 HOURS
  9. ZINC [Concomitant]
  10. ASPIRIN [Concomitant]
     Dosage: 81 MG, UNK
  11. FUROSEMIDE [Concomitant]
     Dosage: 40 MG, UNK
  12. ASCORBIC ACID [Concomitant]
  13. LIPITOR [Concomitant]
     Dosage: 20 MG, UNK

REACTIONS (5)
  - DIZZINESS [None]
  - FALL [None]
  - DIARRHOEA [None]
  - BLOOD PRESSURE INCREASED [None]
  - DRUG INEFFECTIVE [None]
